FAERS Safety Report 18746143 (Version 2)
Quarter: 2021Q1

REPORT INFORMATION
  Report Type: Report from Study
  Country: NL (occurrence: NL)
  Receive Date: 20210115
  Receipt Date: 20210124
  Transmission Date: 20210419
  Serious: Yes (Death)
  Sender: FDA-Public Use
  Company Number: NVSC2021NL008305

PATIENT
  Sex: Female
  Weight: 52 kg

DRUGS (15)
  1. CLOPIDOGREL [Concomitant]
     Active Substance: CLOPIDOGREL BISULFATE
     Indication: PRODUCT USED FOR UNKNOWN INDICATION
     Dosage: 75 MG, QD (1 PIECE)
     Route: 065
  2. SINEMET [Concomitant]
     Active Substance: CARBIDOPA\LEVODOPA
     Indication: PRODUCT USED FOR UNKNOWN INDICATION
     Dosage: 62.5, 5X PER DAY 1 PIECE, TAKE AT LEAST 30 MIN BEFORE OR 1 HOUR AFTER THE MEAL
     Route: 065
  3. DESLORATADINE. [Concomitant]
     Active Substance: DESLORATADINE
     Indication: PRODUCT USED FOR UNKNOWN INDICATION
     Dosage: 5 MG, 2X PER DAY 1 PIECE
     Route: 065
  4. MOVICOLON [Concomitant]
     Active Substance: POLYETHYLENE GLYCOL 3350\POTASSIUM CHLORIDE\SODIUM BICARBONATE\SODIUM CHLORIDE
     Indication: PRODUCT USED FOR UNKNOWN INDICATION
     Dosage: 1 DF (0.25 TO 0.5 PART), QD (1X PER DAY, WHEN NECESSARY ? ? ? SACHET) (POWDER FOR DRINK IN SACHET)
     Route: 065
  5. LEVODOPA/CARBIDOPA [Concomitant]
     Active Substance: CARBIDOPA\LEVODOPA
     Indication: PRODUCT USED FOR UNKNOWN INDICATION
     Dosage: 5X PER DAY 1 PIECE
     Route: 065
  6. LEVODOPA/CARBIDOPA [Concomitant]
     Active Substance: CARBIDOPA\LEVODOPA
     Dosage: REGULATED RELEASE TABLET (LONG DURATION), 1X PER DAY 4 PIECES FOR THE NIGHT
     Route: 065
  7. ACLASTA [Suspect]
     Active Substance: ZOLEDRONIC ACID
     Dosage: 1 DF (5 MG (0.05 MG/ML)), Q12MO (1 PER 52 WEEKS)
     Route: 042
     Dates: start: 20200811
  8. ACLASTA [Suspect]
     Active Substance: ZOLEDRONIC ACID
     Indication: OSTEOPOROSIS
     Dosage: 1 DF (5 MG (0.05 MG/ML)), Q12MO (1 PER 52 WEEKS)
     Route: 042
     Dates: start: 20180927
  9. PANTOPRAZOLE [Concomitant]
     Active Substance: PANTOPRAZOLE
     Indication: PRODUCT USED FOR UNKNOWN INDICATION
     Dosage: 40 MG, QD (1X PER DAY 1 PIECE)
     Route: 065
  10. PARACETAMOL TEVA [Concomitant]
     Indication: PRODUCT USED FOR UNKNOWN INDICATION
     Dosage: 500 MG, QID (4X PER DAY 2 PIECES)
     Route: 065
  11. ACLASTA [Suspect]
     Active Substance: ZOLEDRONIC ACID
     Dosage: 1 DF (5 MG (0.05 MG/ML)), Q12MO (1 PER 52 WEEKS)
     Route: 042
     Dates: start: 20190924
  12. LEVOMENTHOL, LIDOCAINE [Concomitant]
     Indication: PRODUCT USED FOR UNKNOWN INDICATION
     Dosage: 10/10 MG/G, 2 TO 3 X PER DAY (SPREAD ON)
     Route: 065
  13. DICLOFENAC [Concomitant]
     Active Substance: DICLOFENAC
     Indication: PRODUCT USED FOR UNKNOWN INDICATION
     Dosage: 1 G (11.6 MG/G), TID (WHEN NECESSARY 3 X PER DAY 1 GRAM)
     Route: 065
  14. CALCI CHEW D3 [Concomitant]
     Active Substance: CALCIUM CARBONATE\CHOLECALCIFEROL
     Indication: PRODUCT USED FOR UNKNOWN INDICATION
     Dosage: 1 DF (500 MG/800 IU), BID (2X PER DAY 1 PIECE)
     Route: 065
  15. CLOZAPINE. [Concomitant]
     Active Substance: CLOZAPINE
     Indication: PRODUCT USED FOR UNKNOWN INDICATION
     Dosage: 6.25 MG, PRN (1 X PER DAY 0.5 TO 1 PIECE)
     Route: 065

REACTIONS (1)
  - Parkinson^s disease [Fatal]
